FAERS Safety Report 24875044 (Version 1)
Quarter: 2025Q1

REPORT INFORMATION
  Report Type: Other
  Country: PT (occurrence: PT)
  Receive Date: 20250122
  Receipt Date: 20250122
  Transmission Date: 20250409
  Serious: Yes (Other)
  Sender: INNOGENIX, LLC
  Company Number: PT-Innogenix, LLC-2169542

PATIENT
  Age: 61 Year
  Sex: Male

DRUGS (3)
  1. METRONIDAZOLE [Suspect]
     Active Substance: METRONIDAZOLE
     Indication: Peptic ulcer
  2. AMOXICILLIN [Suspect]
     Active Substance: AMOXICILLIN
  3. CLARITHROMYCIN [Suspect]
     Active Substance: CLARITHROMYCIN

REACTIONS (3)
  - Frontal lobe epilepsy [Recovered/Resolved]
  - Product use in unapproved indication [Unknown]
  - Toxic encephalopathy [Recovered/Resolved]
